FAERS Safety Report 12350907 (Version 1)
Quarter: 2016Q2

REPORT INFORMATION
  Report Type: Report from Study
  Country: US (occurrence: US)
  Receive Date: 20160510
  Receipt Date: 20160510
  Transmission Date: 20160815
  Serious: No
  Sender: FDA-Public Use
  Company Number: US-VANDA PHARMACEUTICALS, INC-2016TASUS001150

PATIENT
  Age: 37 Year
  Sex: Female

DRUGS (1)
  1. HETLIOZ [Suspect]
     Active Substance: TASIMELTEON
     Indication: CIRCADIAN RHYTHM SLEEP DISORDER
     Dosage: 20 MG, QD
     Route: 048
     Dates: start: 20160226, end: 201603

REACTIONS (8)
  - Dyspnoea [Unknown]
  - Urinary incontinence [Not Recovered/Not Resolved]
  - Urinary tract infection [Unknown]
  - Condition aggravated [Unknown]
  - Insomnia [Not Recovered/Not Resolved]
  - Poor quality sleep [Unknown]
  - Anxiety [Unknown]
  - Irritability [Not Recovered/Not Resolved]

NARRATIVE: CASE EVENT DATE: 2016
